FAERS Safety Report 25658986 (Version 1)
Quarter: 2025Q3

REPORT INFORMATION
  Report Type: Spontaneous
  Country: US (occurrence: None)
  Receive Date: 20250807
  Receipt Date: 20250807
  Transmission Date: 20251020
  Serious: Yes (Hospitalization)
  Sender: FDA-CTU
  Company Number: None

PATIENT
  Age: 45 Year
  Sex: Female
  Weight: 113.4 kg

DRUGS (1)
  1. HERBALS\MITRAGYNINE [Suspect]
     Active Substance: HERBALS\MITRAGYNINE
     Indication: Asthenia
     Dosage: OTHER QUANTITY : 2 FLUID OUNCES (2 OZ)?FREQUENCY : DAILY?
     Route: 048
     Dates: end: 20250725

REACTIONS (8)
  - Drug dependence [None]
  - Withdrawal syndrome [None]
  - Product advertising issue [None]
  - Headache [None]
  - Nausea [None]
  - Pain [None]
  - Product complaint [None]
  - Nonspecific reaction [None]
